FAERS Safety Report 21676232 (Version 1)
Quarter: 2022Q4

REPORT INFORMATION
  Report Type: Spontaneous
  Country: US (occurrence: None)
  Receive Date: 20221201
  Receipt Date: 20221201
  Transmission Date: 20230113
  Serious: No
  Sender: FDA-Public Use
  Company Number: None

PATIENT
  Age: 86 Year
  Sex: Male
  Weight: 71.21 kg

DRUGS (11)
  1. INLYTA [Suspect]
     Active Substance: AXITINIB
     Indication: Renal cancer
     Dosage: FREQUENCY : DAILY;?
     Route: 048
  2. ATORVASTATIN [Concomitant]
  3. CELEXA [Concomitant]
  4. CLONIDINE [Concomitant]
  5. DIPHENOXYLATE-ATROPINE [Concomitant]
  6. HYDROXYZINE [Concomitant]
  7. LOSARTAN [Concomitant]
  8. ONDANSETRON [Concomitant]
  9. PERCOCET [Concomitant]
  10. TAMSULOSIN [Concomitant]
  11. VITAMIN B12 [Concomitant]
     Active Substance: CYANOCOBALAMIN

REACTIONS (2)
  - Therapy interrupted [None]
  - Proteinuria [None]

NARRATIVE: CASE EVENT DATE: 20221114
